FAERS Safety Report 8141352-9 (Version None)
Quarter: 2012Q1

REPORT INFORMATION
  Report Type: 
  Country: None (occurrence: None)
  Receive Date: 20120216
  Receipt Date: 20120203
  Transmission Date: 20120608
  Serious: Yes (Hospitalization)
  Sender: FDA-Public Use
  Company Number: IT-ROCHE-1036540

PATIENT
  Sex: Female

DRUGS (11)
  1. LEVOTHYROXINE SODIUM [Concomitant]
     Indication: HYPOTHYROIDISM
     Route: 048
  2. PRAMIPEXOLE DIHYDROCHLORIDE [Suspect]
     Indication: RESTLESS LEGS SYNDROME
     Route: 048
     Dates: start: 20070429, end: 20110716
  3. NALOXONE [Suspect]
     Indication: RADICULOPATHY
     Route: 048
     Dates: start: 20110201, end: 20110711
  4. DULOXETINE HYDROCHLORIDE [Suspect]
     Indication: PRODUCT USED FOR UNKNOWN INDICATION
     Route: 048
     Dates: start: 20110201, end: 20110711
  5. CLONAZEPAM [Suspect]
     Indication: PRODUCT USED FOR UNKNOWN INDICATION
     Route: 048
     Dates: start: 20060117, end: 20110711
  6. FUROSEMIDE [Concomitant]
  7. ESOPRAL [Concomitant]
  8. TOPAMAX [Suspect]
     Indication: PRODUCT USED FOR UNKNOWN INDICATION
     Route: 048
     Dates: start: 20110201, end: 20110711
  9. NEBIVOLOL HCL [Concomitant]
     Route: 048
  10. ZOLOFT [Suspect]
     Indication: DEPRESSION
     Route: 048
     Dates: start: 20110201, end: 20110711
  11. COUMADIN [Concomitant]
     Indication: ATRIAL FIBRILLATION
     Route: 048

REACTIONS (3)
  - BRADYKINESIA [None]
  - BRADYPHRENIA [None]
  - CONFUSIONAL STATE [None]
